FAERS Safety Report 5183703-3 (Version None)
Quarter: 2006Q4

REPORT INFORMATION
  Report Type: 
  Country: None (occurrence: None)
  Receive Date: 20061220
  Receipt Date: 20060131
  Transmission Date: 20070319
  Serious: Yes (Other)
  Sender: FDA-Public Use
  Company Number: US-GLAXOSMITHKLINE-A0591645A

PATIENT
  Age: 50 Year
  Sex: Female

DRUGS (2)
  1. EQUATE NTS 7MG [Suspect]
     Dosage: 7MG UNKNOWN
  2. EQUATE NTS 14MG [Suspect]
     Dosage: 14MG UNKNOWN

REACTIONS (2)
  - APPLICATION SITE PRURITUS [None]
  - DRUG ABUSER [None]
